FAERS Safety Report 12690150 (Version 2)
Quarter: 2016Q4

REPORT INFORMATION
  Report Type: Spontaneous
  Country: US (occurrence: US)
  Receive Date: 20160826
  Receipt Date: 20161028
  Transmission Date: 20170207
  Serious: Yes (Disabling)
  Sender: FDA-Public Use
  Company Number: US-BTG INTERNATIONAL LTD-BTG01036

PATIENT

DRUGS (1)
  1. CROFAB [Suspect]
     Active Substance: CROTALIDAE POLYVALENT IMMUNE FAB (OVINE)
     Indication: SNAKE BITE
     Dosage: UNK

REACTIONS (4)
  - Grip strength decreased [Not Recovered/Not Resolved]
  - Underdose [None]
  - Sneezing [Not Recovered/Not Resolved]
  - Soft tissue injury [Unknown]
